FAERS Safety Report 7537175-1 (Version None)
Quarter: 2011Q2

REPORT INFORMATION
  Report Type: 
  Country: None (occurrence: None)
  Receive Date: 20110609
  Receipt Date: 20110603
  Transmission Date: 20111010
  Serious: Yes (Other)
  Sender: FDA-Public Use
  Company Number: BR-PFIZER INC-2011102458

PATIENT
  Age: 45 Year
  Sex: Female
  Weight: 65 kg

DRUGS (7)
  1. VARENICLINE TARTRATE [Suspect]
     Indication: TOBACCO USER
     Dosage: 0.5 MG, 1X/DAY
     Route: 048
     Dates: start: 20110502, end: 20110101
  2. OMEPRAZOLE [Concomitant]
     Indication: ULCER
     Dosage: UNK
  3. PANTOPRAZOLE [Concomitant]
     Indication: GASTRIC ULCER
     Dosage: UNK
  4. BROMOPRIDE [Concomitant]
     Indication: RETCHING
  5. FORMOTEROL FUMARATE [Concomitant]
     Indication: DYSPNOEA
     Dosage: UNK
  6. BROMOPRIDE [Concomitant]
     Indication: GASTRIC ULCER
     Dosage: UNK
     Dates: end: 20110101
  7. ALENIA [Concomitant]
     Indication: DYSPNOEA
     Dosage: UNK

REACTIONS (4)
  - ABDOMINAL DISTENSION [None]
  - MEMORY IMPAIRMENT [None]
  - ASPHYXIA [None]
  - OXYGEN SUPPLEMENTATION [None]
